FAERS Safety Report 8715531 (Version 12)
Quarter: 2014Q1

REPORT INFORMATION
  Report Type: Report from Study
  Country: FR (occurrence: FR)
  Receive Date: 20120809
  Receipt Date: 20140319
  Transmission Date: 20141002
  Serious: Yes (Other)
  Sender: FDA-Public Use
  Company Number: FR-ROCHE-1097587

PATIENT
  Age: 65 Year
  Sex: Female
  Weight: 92 kg

DRUGS (7)
  1. VISMODEGIB [Suspect]
     Indication: BASAL CELL CARCINOMA
     Dosage: DATE OF LAST DOSE PRIOR TO SAE: 02/AUG/2012. PERMANENTLY DISCONTINUED DUE TO EVENT. FORM OF ADMINIST
     Route: 048
     Dates: start: 20120706, end: 20120802
  2. TEMERIT [Concomitant]
     Indication: HYPERTENSION
     Route: 065
     Dates: start: 200901
  3. CATAPRESSAN [Concomitant]
     Indication: HYPERTENSION
     Route: 065
     Dates: start: 200901
  4. XANAX [Concomitant]
     Indication: ANXIETY
     Route: 065
     Dates: start: 200901
  5. DOMPERIDONE [Concomitant]
     Indication: NAUSEA
     Route: 065
     Dates: start: 20120730, end: 20120808
  6. BISOPROLOL [Concomitant]
     Indication: PALPITATIONS
     Route: 065
     Dates: start: 20120730, end: 20120808
  7. ZOPICLONE [Concomitant]
     Indication: ANXIETY
     Route: 065
     Dates: start: 20120803, end: 20120808

REACTIONS (1)
  - Hepatic enzyme increased [Recovered/Resolved with Sequelae]
